FAERS Safety Report 4980657-7 (Version None)
Quarter: 2006Q2

REPORT INFORMATION
  Report Type: 
  Country: None (occurrence: None)
  Receive Date: 20060424
  Receipt Date: 20051101
  Transmission Date: 20061013
  Serious: Yes (Other)
  Sender: FDA-Public Use
  Company Number: US-MERCK-0511USA00242

PATIENT
  Age: 69 Year
  Sex: Male
  Weight: 127 kg

DRUGS (1)
  1. VIOXX [Suspect]
     Indication: BACK PAIN
     Route: 048
     Dates: start: 20000901, end: 20040801

REACTIONS (3)
  - ANGINA PECTORIS [None]
  - HYPERTENSION [None]
  - MYOCARDIAL INFARCTION [None]
